FAERS Safety Report 8947114 (Version 3)
Quarter: 2013Q1

REPORT INFORMATION
  Report Type: Spontaneous
  Country: US (occurrence: US)
  Receive Date: 20121205
  Receipt Date: 20130313
  Transmission Date: 20140127
  Serious: No
  Sender: FDA-Public Use
  Company Number: US-PFIZER INC-2012304516

PATIENT
  Age: 45 Year
  Sex: Female
  Weight: 94.3 kg

DRUGS (7)
  1. LYRICA [Suspect]
     Indication: INTERVERTEBRAL DISC DEGENERATION
     Dosage: 225 MG, 2X/DAY
     Route: 048
  2. LYRICA [Suspect]
     Indication: INTERVERTEBRAL DISC PROTRUSION
  3. LYRICA [Suspect]
     Indication: SCIATICA
  4. LYRICA [Suspect]
     Indication: PAIN
  5. NEXIUM [Concomitant]
  6. CHANTIX [Concomitant]
  7. TRAMADOL [Concomitant]

REACTIONS (3)
  - Vision blurred [Unknown]
  - Toothache [Unknown]
  - Tooth fracture [Unknown]
